FAERS Safety Report 7640456-4 (Version None)
Quarter: 2011Q3

REPORT INFORMATION
  Report Type: 
  Country: None (occurrence: None)
  Receive Date: 20110728
  Receipt Date: 20110719
  Transmission Date: 20111222
  Serious: No
  Sender: FDA-Public Use
  Company Number: US-BIOGENIDEC-2010BI033231

PATIENT
  Age: 41 Year
  Sex: Female

DRUGS (2)
  1. TYSABRI [Suspect]
     Route: 042
     Dates: start: 20110624
  2. TYSABRI [Suspect]
     Indication: MULTIPLE SCLEROSIS
     Route: 042
     Dates: start: 20100903, end: 20101102

REACTIONS (11)
  - FALL [None]
  - DRUG INEFFECTIVE [None]
  - BALANCE DISORDER [None]
  - INFUSION SITE ANAESTHESIA [None]
  - DYSARTHRIA [None]
  - VEIN DISORDER [None]
  - OEDEMA PERIPHERAL [None]
  - BURNING SENSATION [None]
  - SKIN BURNING SENSATION [None]
  - CONTUSION [None]
  - POOR VENOUS ACCESS [None]
